FAERS Safety Report 5024446-6 (Version None)
Quarter: 2006Q2

REPORT INFORMATION
  Report Type: 
  Country: None (occurrence: None)
  Receive Date: 20060607
  Receipt Date: 20060524
  Transmission Date: 20061013
  Serious: Yes (Other)
  Sender: FDA-Public Use
  Company Number: 2006069068

PATIENT
  Sex: 0

DRUGS (1)
  1. SULFASALAZINE [Suspect]
     Indication: ILL-DEFINED DISORDER
     Dates: start: 20020101

REACTIONS (2)
  - PLEURAL EFFUSION [None]
  - PLEURISY [None]
